FAERS Safety Report 16849634 (Version 1)
Quarter: 2019Q4

REPORT INFORMATION
  Report Type: Spontaneous
  Country: US (occurrence: US)
  Receive Date: 20190925
  Receipt Date: 20190925
  Transmission Date: 20200122
  Serious: Yes (Disabling, Other)
  Sender: FDA-Public Use
  Company Number: None

PATIENT
  Age: 34 Year
  Sex: Female
  Weight: 71.1 kg

DRUGS (32)
  1. LUBRICATING EYE DROPS [Concomitant]
     Active Substance: CARBOXYMETHYLCELLULOSE SODIUM
  2. SALT LAKE MINERAL DROPS CONCEN TRACE [Concomitant]
  3. LUTEIN [Concomitant]
     Active Substance: LUTEIN
  4. SULFORAPHANE. [Concomitant]
     Active Substance: SULFORAPHANE
  5. CAMU CAMU [Concomitant]
  6. LIVER ESSENTIALS [Concomitant]
  7. KRIL OIL [Concomitant]
  8. ALPHA LIPOIC ACID [Concomitant]
     Active Substance: .ALPHA.-LIPOIC ACID
  9. SOD [Concomitant]
  10. LIQUID COPPER [Concomitant]
  11. BLOOD SUGAR ESSENTIALS [Concomitant]
  12. VITAMIN A+D [Concomitant]
  13. NONI BERRI [Concomitant]
  14. KELP [Concomitant]
     Active Substance: KELP
  15. VITAMIN E [Concomitant]
     Active Substance: .ALPHA.-TOCOPHEROL
  16. NAC [Concomitant]
     Active Substance: ACETYLCYSTEINE
  17. HEART ESSENTIALS [Concomitant]
  18. METOCLOPRAMIDE. [Suspect]
     Active Substance: METOCLOPRAMIDE
     Indication: LACTATION STIMULATION THERAPY
     Dosage: ?          QUANTITY:1 TABLET(S);?
     Route: 048
     Dates: start: 20190918, end: 20190924
  19. SPROUTED BROCCOLI SEEDS [Concomitant]
  20. SUPER ANTIOXIDANTS [Concomitant]
  21. PHOSPHORUS [Concomitant]
     Active Substance: PHOSPHORUS
  22. MORINGA LEAF [Concomitant]
  23. TRIPLE MAGNESIUM COMPLEX [Concomitant]
  24. VITAMIN K1 [Concomitant]
     Active Substance: PHYTONADIONE
  25. OLIVE LEAF EXTRACT [Concomitant]
  26. BLACK CURRANT OIL [Concomitant]
  27. CONCENTRATED POMEGRANTE JUICE [Concomitant]
  28. SALINE NASAL SPRAY [Concomitant]
     Active Substance: SODIUM CHLORIDE
  29. PURE SYNERGY MULTIVITAMIN [Concomitant]
  30. PYCNOGENOL [Concomitant]
     Active Substance: DIETARY SUPPLEMENT
  31. HOLY BASIL [Concomitant]
  32. KIDNEY ESSENTIALS [Concomitant]

REACTIONS (3)
  - Hypoaesthesia oral [None]
  - Tremor [None]
  - Therapeutic response unexpected [None]

NARRATIVE: CASE EVENT DATE: 20190919
